FAERS Safety Report 18578468 (Version 1)
Quarter: 2020Q4

REPORT INFORMATION
  Report Type: Spontaneous
  Country: US (occurrence: US)
  Receive Date: 20201202
  Receipt Date: 20201202
  Transmission Date: 20210114
  Serious: Yes (Hospitalization)
  Sender: FDA-Public Use
  Company Number: None

PATIENT
  Age: 86 Year
  Sex: Male
  Weight: 99.79 kg

DRUGS (1)
  1. LISINOPRIL (LISINOPRIL 2.5MG TAB) [Suspect]
     Active Substance: LISINOPRIL
     Indication: CARDIAC FAILURE CONGESTIVE
     Route: 048
     Dates: start: 20190116, end: 20190201

REACTIONS (8)
  - Back pain [None]
  - Abdominal pain [None]
  - Angioedema [None]
  - Vomiting [None]
  - Nausea [None]
  - Retching [None]
  - Leukocytosis [None]
  - Pancreatitis [None]

NARRATIVE: CASE EVENT DATE: 20190201
